FAERS Safety Report 7569882-9 (Version None)
Quarter: 2011Q2

REPORT INFORMATION
  Report Type: 
  Country: None (occurrence: None)
  Receive Date: 20110622
  Receipt Date: 20110622
  Transmission Date: 20111010
  Serious: No
  Sender: FDA-Public Use
  Company Number: None

PATIENT
  Sex: Female
  Weight: 73.9363 kg

DRUGS (1)
  1. QVAR 80 [Suspect]
     Indication: ASTHMA
     Dosage: 2 PUFFS TWICE DAILY OTHER
     Route: 050
     Dates: start: 20110216, end: 20110217

REACTIONS (1)
  - FEELING ABNORMAL [None]
